FAERS Safety Report 23855635 (Version 5)
Quarter: 2025Q3

REPORT INFORMATION
  Report Type: Spontaneous
  Country: JP (occurrence: JP)
  Receive Date: 20240514
  Receipt Date: 20250725
  Transmission Date: 20251020
  Serious: Yes (Death, Congenital Anomaly)
  Sender: NOVARTIS
  Company Number: JP-002147023-NVSJ2024JP005675

PATIENT

DRUGS (5)
  1. KESIMPTA [Suspect]
     Active Substance: OFATUMUMAB
     Indication: Foetal exposure during pregnancy
     Route: 064
     Dates: start: 20240409
  2. PREDONINE [Concomitant]
     Active Substance: PREDNISOLONE
     Indication: Foetal exposure during pregnancy
     Route: 064
     Dates: start: 20240327
  3. ESOMEPRAZOLE [Concomitant]
     Active Substance: ESOMEPRAZOLE
     Indication: Foetal exposure during pregnancy
     Route: 064
     Dates: start: 20240327
  4. CALONAL [Concomitant]
     Active Substance: ACETAMINOPHEN
     Indication: Foetal exposure during pregnancy
     Route: 064
     Dates: start: 20240210
  5. BROTIZOLAM [Concomitant]
     Active Substance: BROTIZOLAM
     Indication: Foetal exposure during pregnancy
     Route: 064
     Dates: start: 20240308

REACTIONS (2)
  - Trisomy 21 [Fatal]
  - Foetal exposure during pregnancy [Unknown]
